FAERS Safety Report 14723937 (Version 1)
Quarter: 2018Q2

REPORT INFORMATION
  Report Type: Spontaneous
  Country: GR (occurrence: GR)
  Receive Date: 20180405
  Receipt Date: 20180405
  Transmission Date: 20180711
  Serious: Yes (Other)
  Sender: FDA-Public Use
  Company Number: GR-PFIZER INC-2018136758

PATIENT
  Age: 50 Year
  Sex: Male

DRUGS (5)
  1. MUSCO-RIL [Concomitant]
     Indication: BACK PAIN
  2. FILICINE [Concomitant]
     Dosage: 10 MG, UNK
  3. STELARA [Suspect]
     Active Substance: USTEKINUMAB
     Indication: PSORIATIC ARTHROPATHY
     Dosage: 90 MG, UNK
     Route: 058
  4. VOLTAREN [Concomitant]
     Active Substance: DICLOFENAC SODIUM
     Indication: BACK PAIN
  5. METHOTREXATE SODIUM. [Suspect]
     Active Substance: METHOTREXATE SODIUM
     Indication: PSORIATIC ARTHROPATHY
     Dosage: 20 MG, UNK

REACTIONS (2)
  - Subcutaneous abscess [Recovering/Resolving]
  - Back pain [Recovered/Resolved]
